FAERS Safety Report 22133144 (Version 1)
Quarter: 2023Q1

REPORT INFORMATION
  Report Type: Report from Study
  Country: CA (occurrence: CA)
  Receive Date: 20230324
  Receipt Date: 20230324
  Transmission Date: 20230418
  Serious: Yes (Hospitalization)
  Sender: FDA-Public Use
  Company Number: CA-KOREA IPSEN Pharma-2021-14664

PATIENT
  Age: 65 Year
  Sex: Female

DRUGS (4)
  1. LANREOTIDE ACETATE [Suspect]
     Active Substance: LANREOTIDE ACETATE
     Indication: Neuroendocrine tumour
     Route: 058
     Dates: start: 20210419
  2. CODEINE [Concomitant]
     Active Substance: CODEINE
  3. METHIMAZOLE [Concomitant]
     Active Substance: METHIMAZOLE
  4. PROPRANOLOL [Concomitant]
     Active Substance: PROPRANOLOL HYDROCHLORIDE

REACTIONS (8)
  - Tumour excision [Unknown]
  - Hepatectomy [Unknown]
  - Surgery [Unknown]
  - Biopsy [Unknown]
  - Hernia repair [Unknown]
  - Heart rate increased [Unknown]
  - Product dose omission issue [Unknown]
  - SARS-CoV-2 test positive [Unknown]

NARRATIVE: CASE EVENT DATE: 20210101
